FAERS Safety Report 24988966 (Version 2)
Quarter: 2025Q1

REPORT INFORMATION
  Report Type: Spontaneous
  Country: CA (occurrence: CA)
  Receive Date: 20250220
  Receipt Date: 20250227
  Transmission Date: 20250408
  Serious: Yes (Death, Life-Threatening, Hospitalization, Disabling, Other)
  Sender: Haleon PLC
  Company Number: CA-002147023-NVSC2024CA167969

PATIENT
  Age: 44 Year
  Sex: Female
  Weight: 70 kg

DRUGS (273)
  1. DICLOFENAC [Suspect]
     Active Substance: DICLOFENAC
     Indication: Product used for unknown indication
     Route: 065
  2. DICLOFENAC [Suspect]
     Active Substance: DICLOFENAC
     Indication: Rheumatoid arthritis
     Route: 065
  3. DICLOFENAC [Suspect]
     Active Substance: DICLOFENAC
     Route: 058
  4. DICLOFENAC [Suspect]
     Active Substance: DICLOFENAC
     Route: 065
  5. PSEUDOEPHEDRINE HYDROCHLORIDE [Suspect]
     Active Substance: PSEUDOEPHEDRINE HYDROCHLORIDE
     Indication: Rheumatoid arthritis
     Route: 065
  6. PSEUDOEPHEDRINE HYDROCHLORIDE [Suspect]
     Active Substance: PSEUDOEPHEDRINE HYDROCHLORIDE
     Route: 065
  7. XELJANZ [Suspect]
     Active Substance: TOFACITINIB CITRATE
     Indication: Rheumatoid arthritis
     Route: 042
  8. XELJANZ [Suspect]
     Active Substance: TOFACITINIB CITRATE
     Indication: Psoriatic arthropathy
     Route: 065
  9. XELJANZ [Suspect]
     Active Substance: TOFACITINIB CITRATE
     Route: 048
  10. XELJANZ [Suspect]
     Active Substance: TOFACITINIB CITRATE
     Route: 065
  11. XELJANZ [Suspect]
     Active Substance: TOFACITINIB CITRATE
     Route: 065
  12. XELJANZ [Suspect]
     Active Substance: TOFACITINIB CITRATE
     Route: 048
  13. XELJANZ [Suspect]
     Active Substance: TOFACITINIB CITRATE
     Route: 016
  14. XELJANZ [Suspect]
     Active Substance: TOFACITINIB CITRATE
     Route: 065
  15. XELJANZ [Suspect]
     Active Substance: TOFACITINIB CITRATE
     Route: 065
  16. XELJANZ [Suspect]
     Active Substance: TOFACITINIB CITRATE
  17. CAFFEINE [Concomitant]
     Active Substance: CAFFEINE
     Indication: Product used for unknown indication
     Route: 065
  18. ENBREL [Suspect]
     Active Substance: ETANERCEPT
     Indication: Psoriatic arthropathy
     Route: 065
  19. ENBREL [Suspect]
     Active Substance: ETANERCEPT
     Indication: Rheumatoid arthritis
     Route: 065
  20. ENBREL [Suspect]
     Active Substance: ETANERCEPT
     Route: 058
  21. ENBREL [Suspect]
     Active Substance: ETANERCEPT
     Route: 058
  22. ENBREL [Suspect]
     Active Substance: ETANERCEPT
     Route: 058
  23. ENBREL [Suspect]
     Active Substance: ETANERCEPT
     Route: 058
  24. ENBREL [Suspect]
     Active Substance: ETANERCEPT
     Route: 058
  25. PANTOPRAZOLE SODIUM [Concomitant]
     Active Substance: PANTOPRAZOLE SODIUM
     Indication: Product used for unknown indication
     Route: 065
  26. CHLORHEXIDINE [Suspect]
     Active Substance: CHLORHEXIDINE
     Indication: Product used for unknown indication
     Route: 048
  27. CHLORHEXIDINE [Suspect]
     Active Substance: CHLORHEXIDINE
     Route: 061
  28. CHLORHEXIDINE [Suspect]
     Active Substance: CHLORHEXIDINE
     Route: 048
  29. LEFLUNOMIDE [Suspect]
     Active Substance: LEFLUNOMIDE
     Indication: Rheumatoid arthritis
     Route: 048
  30. LEFLUNOMIDE [Suspect]
     Active Substance: LEFLUNOMIDE
     Route: 048
  31. LEFLUNOMIDE [Suspect]
     Active Substance: LEFLUNOMIDE
     Route: 048
  32. LEFLUNOMIDE [Suspect]
     Active Substance: LEFLUNOMIDE
     Route: 048
  33. LEFLUNOMIDE [Suspect]
     Active Substance: LEFLUNOMIDE
     Route: 058
  34. LEFLUNOMIDE [Suspect]
     Active Substance: LEFLUNOMIDE
     Route: 048
  35. LEFLUNOMIDE [Suspect]
     Active Substance: LEFLUNOMIDE
     Route: 048
  36. LEFLUNOMIDE [Suspect]
     Active Substance: LEFLUNOMIDE
     Route: 065
  37. ACETAMINOPHEN [Concomitant]
     Active Substance: ACETAMINOPHEN
     Indication: Product used for unknown indication
     Route: 065
  38. CIMZIA [Suspect]
     Active Substance: CERTOLIZUMAB PEGOL
     Indication: Rheumatoid arthritis
     Route: 058
  39. CIMZIA [Suspect]
     Active Substance: CERTOLIZUMAB PEGOL
     Route: 065
  40. CIMZIA [Suspect]
     Active Substance: CERTOLIZUMAB PEGOL
     Route: 005
  41. CIMZIA [Suspect]
     Active Substance: CERTOLIZUMAB PEGOL
     Route: 065
  42. GLUCOSAMINE [Concomitant]
     Active Substance: GLUCOSAMINE
     Indication: Product used for unknown indication
     Route: 065
  43. TYLENOL [Concomitant]
     Active Substance: ACETAMINOPHEN
     Indication: Product used for unknown indication
     Route: 065
  44. STELARA [Suspect]
     Active Substance: USTEKINUMAB
     Indication: Rheumatoid arthritis
     Route: 058
  45. STELARA [Suspect]
     Active Substance: USTEKINUMAB
     Route: 065
  46. STELARA [Suspect]
     Active Substance: USTEKINUMAB
     Route: 058
  47. STELARA [Suspect]
     Active Substance: USTEKINUMAB
     Route: 058
  48. STELARA [Suspect]
     Active Substance: USTEKINUMAB
     Route: 042
  49. PHTHALYLSULFATHIAZOLE [Suspect]
     Active Substance: PHTHALYLSULFATHIAZOLE
     Indication: Rheumatoid arthritis
     Route: 048
  50. PHTHALYLSULFATHIAZOLE [Suspect]
     Active Substance: PHTHALYLSULFATHIAZOLE
     Route: 065
  51. ESTRADIOL [Suspect]
     Active Substance: ESTRADIOL
     Indication: Product used for unknown indication
     Route: 065
  52. ARAVA [Suspect]
     Active Substance: LEFLUNOMIDE
     Indication: Rheumatoid arthritis
     Route: 065
  53. ARAVA [Suspect]
     Active Substance: LEFLUNOMIDE
     Route: 005
  54. ARAVA [Suspect]
     Active Substance: LEFLUNOMIDE
     Route: 048
  55. ARAVA [Suspect]
     Active Substance: LEFLUNOMIDE
     Route: 019
  56. ARAVA [Suspect]
     Active Substance: LEFLUNOMIDE
     Route: 048
  57. ARAVA [Suspect]
     Active Substance: LEFLUNOMIDE
     Route: 065
  58. ARAVA [Suspect]
     Active Substance: LEFLUNOMIDE
     Route: 019
  59. FOLIC ACID [Suspect]
     Active Substance: FOLIC ACID
     Indication: Rheumatoid arthritis
     Route: 065
  60. FOLIC ACID [Suspect]
     Active Substance: FOLIC ACID
     Route: 016
  61. FOLIC ACID [Suspect]
     Active Substance: FOLIC ACID
     Route: 058
  62. FOLIC ACID [Suspect]
     Active Substance: FOLIC ACID
     Route: 065
  63. FOLIC ACID [Suspect]
     Active Substance: FOLIC ACID
     Route: 058
  64. FOLIC ACID [Suspect]
     Active Substance: FOLIC ACID
     Route: 065
  65. FOLIC ACID [Suspect]
     Active Substance: FOLIC ACID
     Route: 065
  66. FOLIC ACID [Suspect]
     Active Substance: FOLIC ACID
     Route: 058
  67. FOLIC ACID [Suspect]
     Active Substance: FOLIC ACID
     Route: 065
  68. FOLIC ACID [Suspect]
     Active Substance: FOLIC ACID
     Route: 048
  69. PREDNISONE [Suspect]
     Active Substance: PREDNISONE
     Indication: Rheumatoid arthritis
     Route: 065
  70. PREDNISONE [Suspect]
     Active Substance: PREDNISONE
     Indication: Systemic lupus erythematosus
     Route: 048
  71. PREDNISONE [Suspect]
     Active Substance: PREDNISONE
     Indication: Synovitis
     Route: 048
  72. PREDNISONE [Suspect]
     Active Substance: PREDNISONE
     Indication: Pemphigus
     Route: 065
  73. PREDNISONE [Suspect]
     Active Substance: PREDNISONE
     Indication: Psoriatic arthropathy
     Route: 065
  74. PREDNISONE [Suspect]
     Active Substance: PREDNISONE
     Indication: Inflammation
     Route: 048
  75. PREDNISONE [Suspect]
     Active Substance: PREDNISONE
     Indication: Bursitis
     Route: 065
  76. DESOXIMETASONE [Suspect]
     Active Substance: DESOXIMETASONE
     Indication: Rheumatoid arthritis
     Route: 048
  77. DESOXIMETASONE [Suspect]
     Active Substance: DESOXIMETASONE
     Route: 061
  78. DESOXIMETASONE [Suspect]
     Active Substance: DESOXIMETASONE
     Route: 003
  79. DESOXIMETASONE [Suspect]
     Active Substance: DESOXIMETASONE
     Route: 016
  80. DESOXIMETASONE [Suspect]
     Active Substance: DESOXIMETASONE
     Route: 065
  81. DESOXIMETASONE [Suspect]
     Active Substance: DESOXIMETASONE
     Route: 003
  82. LANSOPRAZOLE [Concomitant]
     Active Substance: LANSOPRAZOLE
     Indication: Product used for unknown indication
     Route: 065
  83. PREDNISONE [Suspect]
     Active Substance: PREDNISONE
     Indication: Psoriatic arthropathy
     Route: 042
  84. PREDNISONE [Suspect]
     Active Substance: PREDNISONE
     Indication: Systemic lupus erythematosus
     Route: 065
  85. PREDNISONE [Suspect]
     Active Substance: PREDNISONE
     Indication: Synovitis
     Route: 048
  86. PREDNISONE [Suspect]
     Active Substance: PREDNISONE
     Indication: Arthritis
     Route: 065
  87. PREDNISONE [Suspect]
     Active Substance: PREDNISONE
     Indication: Rheumatoid arthritis
     Route: 048
  88. PREDNISONE [Suspect]
     Active Substance: PREDNISONE
     Route: 042
  89. PREDNISONE [Suspect]
     Active Substance: PREDNISONE
     Route: 016
  90. PREDNISONE [Suspect]
     Active Substance: PREDNISONE
     Route: 065
  91. PREDNISONE [Suspect]
     Active Substance: PREDNISONE
     Route: 065
  92. PREDNISONE [Suspect]
     Active Substance: PREDNISONE
     Route: 016
  93. PREDNISONE [Suspect]
     Active Substance: PREDNISONE
     Route: 048
  94. PREDNISONE [Suspect]
     Active Substance: PREDNISONE
     Route: 048
  95. PREDNISONE [Suspect]
     Active Substance: PREDNISONE
     Route: 048
  96. PREDNISONE [Suspect]
     Active Substance: PREDNISONE
     Route: 048
  97. PREDNISONE [Suspect]
     Active Substance: PREDNISONE
     Route: 048
  98. PREDNISONE [Suspect]
     Active Substance: PREDNISONE
     Route: 042
  99. PREDNISONE [Suspect]
     Active Substance: PREDNISONE
     Route: 048
  100. PREDNISONE [Suspect]
     Active Substance: PREDNISONE
     Route: 048
  101. PREDNISONE [Suspect]
     Active Substance: PREDNISONE
     Route: 058
  102. PREDNISONE [Suspect]
     Active Substance: PREDNISONE
     Route: 048
  103. ACTEMRA [Suspect]
     Active Substance: TOCILIZUMAB
     Indication: Rheumatoid arthritis
     Route: 042
  104. ACTEMRA [Suspect]
     Active Substance: TOCILIZUMAB
     Route: 042
  105. ACTEMRA [Suspect]
     Active Substance: TOCILIZUMAB
     Route: 042
  106. ACTEMRA [Suspect]
     Active Substance: TOCILIZUMAB
     Route: 065
  107. ACTEMRA [Suspect]
     Active Substance: TOCILIZUMAB
     Route: 042
  108. ACTEMRA [Suspect]
     Active Substance: TOCILIZUMAB
     Route: 042
  109. ACTEMRA [Suspect]
     Active Substance: TOCILIZUMAB
     Dosage: UNK, QW (0.142 DOSAGE FORM)
     Route: 065
  110. ACTEMRA [Suspect]
     Active Substance: TOCILIZUMAB
     Route: 058
  111. ACTEMRA [Suspect]
     Active Substance: TOCILIZUMAB
     Route: 016
  112. ACTEMRA [Suspect]
     Active Substance: TOCILIZUMAB
     Route: 048
  113. ACTEMRA [Suspect]
     Active Substance: TOCILIZUMAB
     Route: 058
  114. ACTEMRA [Suspect]
     Active Substance: TOCILIZUMAB
     Route: 016
  115. ACTEMRA [Suspect]
     Active Substance: TOCILIZUMAB
     Route: 065
  116. ACTEMRA [Suspect]
     Active Substance: TOCILIZUMAB
     Route: 042
  117. ACTEMRA [Suspect]
     Active Substance: TOCILIZUMAB
     Route: 016
  118. ACTEMRA [Suspect]
     Active Substance: TOCILIZUMAB
     Route: 048
  119. ACTEMRA [Suspect]
     Active Substance: TOCILIZUMAB
     Route: 065
  120. ACTEMRA [Suspect]
     Active Substance: TOCILIZUMAB
     Route: 042
  121. METHOTREXATE [Suspect]
     Active Substance: METHOTREXATE
     Indication: Rheumatoid arthritis
     Route: 048
  122. METHOTREXATE [Suspect]
     Active Substance: METHOTREXATE
     Route: 048
  123. METHOTREXATE [Suspect]
     Active Substance: METHOTREXATE
     Route: 048
  124. METHOTREXATE [Suspect]
     Active Substance: METHOTREXATE
     Route: 048
  125. METHOTREXATE [Suspect]
     Active Substance: METHOTREXATE
     Route: 048
  126. METHOTREXATE [Suspect]
     Active Substance: METHOTREXATE
     Route: 048
  127. METHOTREXATE [Suspect]
     Active Substance: METHOTREXATE
     Route: 048
  128. METHOTREXATE [Suspect]
     Active Substance: METHOTREXATE
     Route: 016
  129. METHOTREXATE [Suspect]
     Active Substance: METHOTREXATE
     Route: 048
  130. METHOTREXATE [Suspect]
     Active Substance: METHOTREXATE
     Route: 048
  131. METHOTREXATE [Suspect]
     Active Substance: METHOTREXATE
     Route: 048
  132. METHOTREXATE [Suspect]
     Active Substance: METHOTREXATE
     Route: 048
  133. METHOTREXATE [Suspect]
     Active Substance: METHOTREXATE
     Route: 065
  134. METHOTREXATE [Suspect]
     Active Substance: METHOTREXATE
     Route: 048
  135. METHOTREXATE [Suspect]
     Active Substance: METHOTREXATE
     Route: 013
  136. METHOTREXATE [Suspect]
     Active Substance: METHOTREXATE
     Route: 065
  137. METHOTREXATE [Suspect]
     Active Substance: METHOTREXATE
     Route: 048
  138. METHOTREXATE [Suspect]
     Active Substance: METHOTREXATE
     Route: 058
  139. METHOTREXATE [Suspect]
     Active Substance: METHOTREXATE
     Route: 048
  140. METHOTREXATE [Suspect]
     Active Substance: METHOTREXATE
     Route: 065
  141. METHOTREXATE [Suspect]
     Active Substance: METHOTREXATE
     Route: 013
  142. METHOTREXATE [Suspect]
     Active Substance: METHOTREXATE
     Route: 065
  143. FOSAMAX [Suspect]
     Active Substance: ALENDRONATE SODIUM
     Indication: Rheumatoid arthritis
     Route: 016
  144. FOSAMAX [Suspect]
     Active Substance: ALENDRONATE SODIUM
     Route: 048
  145. FOSAMAX [Suspect]
     Active Substance: ALENDRONATE SODIUM
     Route: 048
  146. FOSAMAX [Suspect]
     Active Substance: ALENDRONATE SODIUM
     Route: 005
  147. FOSAMAX [Suspect]
     Active Substance: ALENDRONATE SODIUM
     Route: 048
  148. FOSAMAX [Suspect]
     Active Substance: ALENDRONATE SODIUM
     Route: 048
  149. FOSAMAX [Suspect]
     Active Substance: ALENDRONATE SODIUM
     Route: 065
  150. FOSAMAX [Suspect]
     Active Substance: ALENDRONATE SODIUM
     Route: 048
  151. FOSAMAX [Suspect]
     Active Substance: ALENDRONATE SODIUM
     Route: 048
  152. FOSAMAX [Suspect]
     Active Substance: ALENDRONATE SODIUM
     Route: 058
  153. FOSAMAX [Suspect]
     Active Substance: ALENDRONATE SODIUM
     Route: 005
  154. VITAMIN C [Concomitant]
     Active Substance: ASCORBIC ACID
     Indication: Product used for unknown indication
     Route: 065
  155. ATASOL [Concomitant]
     Indication: Product used for unknown indication
     Route: 065
  156. SIMPONI [Suspect]
     Active Substance: GOLIMUMAB
     Indication: Rheumatoid arthritis
     Route: 058
  157. SIMPONI [Suspect]
     Active Substance: GOLIMUMAB
     Route: 058
  158. SIMPONI [Suspect]
     Active Substance: GOLIMUMAB
     Route: 058
  159. SIMPONI [Suspect]
     Active Substance: GOLIMUMAB
     Route: 042
  160. SIMPONI [Suspect]
     Active Substance: GOLIMUMAB
     Route: 058
  161. SIMPONI [Suspect]
     Active Substance: GOLIMUMAB
     Route: 048
  162. SIMPONI [Suspect]
     Active Substance: GOLIMUMAB
     Route: 058
  163. FISH OIL [Concomitant]
     Active Substance: FISH OIL
     Indication: Product used for unknown indication
     Route: 065
  164. SULFASALAZINE [Suspect]
     Active Substance: SULFASALAZINE
     Indication: Rheumatoid arthritis
     Route: 048
  165. SULFASALAZINE [Suspect]
     Active Substance: SULFASALAZINE
     Route: 048
  166. SULFASALAZINE [Suspect]
     Active Substance: SULFASALAZINE
     Route: 065
  167. SULFASALAZINE [Suspect]
     Active Substance: SULFASALAZINE
     Route: 048
  168. SULFASALAZINE [Suspect]
     Active Substance: SULFASALAZINE
     Route: 048
  169. SULFASALAZINE [Suspect]
     Active Substance: SULFASALAZINE
     Route: 048
  170. SULFASALAZINE [Suspect]
     Active Substance: SULFASALAZINE
     Route: 048
  171. SULFASALAZINE [Suspect]
     Active Substance: SULFASALAZINE
     Route: 048
  172. SULFASALAZINE [Suspect]
     Active Substance: SULFASALAZINE
     Route: 065
  173. SULFASALAZINE [Suspect]
     Active Substance: SULFASALAZINE
     Route: 048
  174. SULFASALAZINE [Suspect]
     Active Substance: SULFASALAZINE
     Route: 065
  175. SULFASALAZINE [Suspect]
     Active Substance: SULFASALAZINE
     Route: 048
  176. SULFASALAZINE [Suspect]
     Active Substance: SULFASALAZINE
     Route: 065
  177. SULFASALAZINE [Suspect]
     Active Substance: SULFASALAZINE
     Route: 065
  178. SULFASALAZINE [Suspect]
     Active Substance: SULFASALAZINE
     Route: 065
  179. SULFASALAZINE [Suspect]
     Active Substance: SULFASALAZINE
     Route: 048
  180. SULFASALAZINE [Suspect]
     Active Substance: SULFASALAZINE
     Route: 048
  181. SULFASALAZINE [Suspect]
     Active Substance: SULFASALAZINE
     Route: 065
  182. SULFASALAZINE [Suspect]
     Active Substance: SULFASALAZINE
     Route: 048
  183. SULFASALAZINE [Suspect]
     Active Substance: SULFASALAZINE
     Route: 065
  184. SULFASALAZINE [Suspect]
     Active Substance: SULFASALAZINE
     Route: 048
  185. SULFASALAZINE [Suspect]
     Active Substance: SULFASALAZINE
     Route: 065
  186. ACETAMINOPHEN [Suspect]
     Active Substance: ACETAMINOPHEN
     Indication: Rheumatoid arthritis
     Route: 065
  187. ACETAMINOPHEN [Suspect]
     Active Substance: ACETAMINOPHEN
     Indication: Pyrexia
     Route: 065
  188. ACETAMINOPHEN [Suspect]
     Active Substance: ACETAMINOPHEN
     Indication: Pain
     Route: 065
  189. CETIRIZINE HYDROCHLORIDE [Suspect]
     Active Substance: CETIRIZINE HYDROCHLORIDE
     Indication: Rheumatoid arthritis
     Route: 065
  190. CETIRIZINE HYDROCHLORIDE [Suspect]
     Active Substance: CETIRIZINE HYDROCHLORIDE
     Route: 048
  191. CETIRIZINE HYDROCHLORIDE [Suspect]
     Active Substance: CETIRIZINE HYDROCHLORIDE
     Route: 016
  192. CETIRIZINE HYDROCHLORIDE [Suspect]
     Active Substance: CETIRIZINE HYDROCHLORIDE
     Route: 065
  193. CETIRIZINE HYDROCHLORIDE [Suspect]
     Active Substance: CETIRIZINE HYDROCHLORIDE
     Route: 065
  194. CETIRIZINE HYDROCHLORIDE [Suspect]
     Active Substance: CETIRIZINE HYDROCHLORIDE
     Route: 048
  195. CETIRIZINE HYDROCHLORIDE [Suspect]
     Active Substance: CETIRIZINE HYDROCHLORIDE
     Route: 005
  196. CETIRIZINE HYDROCHLORIDE [Suspect]
     Active Substance: CETIRIZINE HYDROCHLORIDE
     Route: 065
  197. HYDROCORTISONE [Suspect]
     Active Substance: HYDROCORTISONE
     Indication: Rheumatoid arthritis
     Route: 003
  198. HYDROCORTISONE [Suspect]
     Active Substance: HYDROCORTISONE
     Route: 048
  199. HYDROCORTISONE [Suspect]
     Active Substance: HYDROCORTISONE
     Route: 061
  200. HYDROCORTISONE [Suspect]
     Active Substance: HYDROCORTISONE
     Route: 058
  201. HYDROCORTISONE [Suspect]
     Active Substance: HYDROCORTISONE
     Route: 061
  202. ERGOCALCIFEROL [Concomitant]
     Active Substance: ERGOCALCIFEROL
     Indication: Product used for unknown indication
     Route: 065
  203. OXYCODONE TEREPHTHALATE [Suspect]
     Active Substance: OXYCODONE TEREPHTHALATE
     Indication: Product used for unknown indication
     Route: 065
  204. OXYCODONE HYDROCHLORIDE [Suspect]
     Active Substance: OXYCODONE HYDROCHLORIDE
     Indication: Product used for unknown indication
     Route: 065
  205. ALENDRONATE SODIUM [Suspect]
     Active Substance: ALENDRONATE SODIUM
     Indication: Rheumatoid arthritis
     Route: 065
  206. CODEINE [Concomitant]
     Active Substance: CODEINE
     Indication: Product used for unknown indication
     Route: 065
  207. RITUXIMAB [Suspect]
     Active Substance: RITUXIMAB
     Indication: Rheumatoid arthritis
     Route: 042
  208. RITUXIMAB [Suspect]
     Active Substance: RITUXIMAB
     Route: 042
  209. RITUXIMAB [Suspect]
     Active Substance: RITUXIMAB
     Route: 042
  210. RITUXIMAB [Suspect]
     Active Substance: RITUXIMAB
     Route: 058
  211. RITUXIMAB [Suspect]
     Active Substance: RITUXIMAB
     Route: 016
  212. RITUXIMAB [Suspect]
     Active Substance: RITUXIMAB
     Route: 042
  213. OXYCODONE [Suspect]
     Active Substance: OXYCODONE
     Indication: Product used for unknown indication
     Route: 042
  214. SULFASALAZINE [Concomitant]
     Active Substance: SULFASALAZINE
     Indication: Product used for unknown indication
     Route: 065
  215. CETIRIZINE HYDROCHLORIDE\PSEUDOEPHEDRINE HYDROCHLORIDE [Suspect]
     Active Substance: CETIRIZINE HYDROCHLORIDE\PSEUDOEPHEDRINE HYDROCHLORIDE
     Indication: Rheumatoid arthritis
     Route: 048
  216. CETIRIZINE HYDROCHLORIDE\PSEUDOEPHEDRINE HYDROCHLORIDE [Suspect]
     Active Substance: CETIRIZINE HYDROCHLORIDE\PSEUDOEPHEDRINE HYDROCHLORIDE
     Route: 065
  217. CETIRIZINE HYDROCHLORIDE\PSEUDOEPHEDRINE HYDROCHLORIDE [Suspect]
     Active Substance: CETIRIZINE HYDROCHLORIDE\PSEUDOEPHEDRINE HYDROCHLORIDE
     Route: 065
  218. ACETAMINOPHEN [Suspect]
     Active Substance: ACETAMINOPHEN
     Indication: Rheumatoid arthritis
     Route: 065
  219. ORENCIA [Suspect]
     Active Substance: ABATACEPT
     Indication: Psoriatic arthropathy
     Route: 058
  220. ORENCIA [Suspect]
     Active Substance: ABATACEPT
     Indication: Rheumatoid arthritis
     Route: 065
  221. ORENCIA [Suspect]
     Active Substance: ABATACEPT
     Route: 048
  222. ORENCIA [Suspect]
     Active Substance: ABATACEPT
     Route: 042
  223. ORENCIA [Suspect]
     Active Substance: ABATACEPT
     Route: 058
  224. ORENCIA [Suspect]
     Active Substance: ABATACEPT
     Route: 042
  225. ORENCIA [Suspect]
     Active Substance: ABATACEPT
     Route: 058
  226. ORENCIA [Suspect]
     Active Substance: ABATACEPT
     Route: 058
  227. ORENCIA [Suspect]
     Active Substance: ABATACEPT
     Route: 042
  228. ORENCIA [Suspect]
     Active Substance: ABATACEPT
     Route: 058
  229. ORENCIA [Suspect]
     Active Substance: ABATACEPT
     Route: 058
  230. IBUPROFEN [Concomitant]
     Active Substance: IBUPROFEN
     Indication: Product used for unknown indication
     Route: 065
  231. CORTISONE ACETATE [Suspect]
     Active Substance: CORTISONE ACETATE
     Indication: Rheumatoid arthritis
     Route: 065
  232. CORTISONE ACETATE [Suspect]
     Active Substance: CORTISONE ACETATE
     Route: 065
  233. CORTISONE ACETATE [Suspect]
     Active Substance: CORTISONE ACETATE
     Route: 061
  234. CORTISONE ACETATE [Suspect]
     Active Substance: CORTISONE ACETATE
     Route: 061
  235. CORTISONE ACETATE [Suspect]
     Active Substance: CORTISONE ACETATE
     Route: 048
  236. CORTISONE ACETATE [Suspect]
     Active Substance: CORTISONE ACETATE
     Route: 061
  237. CORTISONE ACETATE [Suspect]
     Active Substance: CORTISONE ACETATE
     Route: 061
  238. CORTISONE ACETATE [Suspect]
     Active Substance: CORTISONE ACETATE
     Route: 048
  239. CORTISONE ACETATE [Suspect]
     Active Substance: CORTISONE ACETATE
     Route: 061
  240. SULFAMETHOXAZOLE [Suspect]
     Active Substance: SULFAMETHOXAZOLE
     Indication: Product used for unknown indication
     Route: 065
  241. ATIVAN [Concomitant]
     Active Substance: LORAZEPAM
     Indication: Product used for unknown indication
     Route: 065
  242. SULFATRIM [Suspect]
     Active Substance: SULFAMETHOXAZOLE\TRIMETHOPRIM
     Indication: Product used for unknown indication
     Route: 065
  243. REMICADE [Suspect]
     Active Substance: INFLIXIMAB
     Indication: Rheumatoid arthritis
     Route: 042
  244. REMICADE [Suspect]
     Active Substance: INFLIXIMAB
     Route: 042
  245. REMICADE [Suspect]
     Active Substance: INFLIXIMAB
     Route: 042
  246. REMICADE [Suspect]
     Active Substance: INFLIXIMAB
     Route: 042
  247. HUMIRA [Suspect]
     Active Substance: ADALIMUMAB
     Indication: Rheumatoid arthritis
     Route: 058
  248. HUMIRA [Suspect]
     Active Substance: ADALIMUMAB
     Indication: Psoriatic arthropathy
     Route: 058
  249. HUMIRA [Suspect]
     Active Substance: ADALIMUMAB
     Route: 065
  250. HUMIRA [Suspect]
     Active Substance: ADALIMUMAB
     Route: 058
  251. HUMIRA [Suspect]
     Active Substance: ADALIMUMAB
     Route: 065
  252. HUMIRA [Suspect]
     Active Substance: ADALIMUMAB
     Route: 058
  253. HUMIRA [Suspect]
     Active Substance: ADALIMUMAB
     Route: 058
  254. HUMIRA [Suspect]
     Active Substance: ADALIMUMAB
     Route: 058
  255. HUMIRA [Suspect]
     Active Substance: ADALIMUMAB
     Route: 058
  256. LEUCOVORIN CALCIUM [Suspect]
     Active Substance: LEUCOVORIN CALCIUM
     Indication: Rheumatoid arthritis
     Route: 065
  257. LEUCOVORIN CALCIUM [Suspect]
     Active Substance: LEUCOVORIN CALCIUM
     Route: 065
  258. LEUCOVORIN CALCIUM [Suspect]
     Active Substance: LEUCOVORIN CALCIUM
     Route: 065
  259. LEUCOVORIN CALCIUM [Suspect]
     Active Substance: LEUCOVORIN CALCIUM
     Route: 065
  260. LEUCOVORIN CALCIUM [Suspect]
     Active Substance: LEUCOVORIN CALCIUM
     Route: 065
  261. LEUCOVORIN CALCIUM [Suspect]
     Active Substance: LEUCOVORIN CALCIUM
     Route: 065
  262. LEUCOVORIN CALCIUM [Suspect]
     Active Substance: LEUCOVORIN CALCIUM
     Route: 065
  263. LEUCOVORIN CALCIUM [Suspect]
     Active Substance: LEUCOVORIN CALCIUM
     Route: 065
  264. LEUCOVORIN CALCIUM [Suspect]
     Active Substance: LEUCOVORIN CALCIUM
     Route: 065
  265. LEUCOVORIN CALCIUM [Suspect]
     Active Substance: LEUCOVORIN CALCIUM
     Route: 065
  266. SULFAMETHOXAZOLE AND TRIMETHOPRIM [Suspect]
     Active Substance: SULFAMETHOXAZOLE\TRIMETHOPRIM
     Indication: Product used for unknown indication
     Route: 065
  267. PANTOPRAZOLE [Concomitant]
     Active Substance: PANTOPRAZOLE
     Indication: Product used for unknown indication
  268. HYDROXYCHLOROQUINE SULFATE [Suspect]
     Active Substance: HYDROXYCHLOROQUINE SULFATE
     Indication: Rheumatoid arthritis
     Route: 048
  269. HYDROXYCHLOROQUINE SULFATE [Suspect]
     Active Substance: HYDROXYCHLOROQUINE SULFATE
     Route: 048
  270. HYDROXYCHLOROQUINE SULFATE [Suspect]
     Active Substance: HYDROXYCHLOROQUINE SULFATE
     Route: 048
  271. TYLENOL WITH CODEINE [Concomitant]
     Active Substance: ACETAMINOPHEN\CODEINE PHOSPHATE
     Indication: Product used for unknown indication
  272. ALENDRONATE SODIUM [Suspect]
     Active Substance: ALENDRONATE SODIUM
     Indication: Rheumatoid arthritis
     Route: 065
  273. CAFFEINE CITRATE [Concomitant]
     Active Substance: CAFFEINE CITRATE
     Indication: Product used for unknown indication
     Route: 065

REACTIONS (14)
  - Asthma [Fatal]
  - Deep vein thrombosis postoperative [Fatal]
  - Drug hypersensitivity [Fatal]
  - Lower limb fracture [Fatal]
  - Autoimmune disorder [Fatal]
  - Contusion [Fatal]
  - Road traffic accident [Fatal]
  - Urticaria [Fatal]
  - Off label use [Fatal]
  - Gait inability [Fatal]
  - Treatment failure [Fatal]
  - Therapy non-responder [Fatal]
  - Condition aggravated [Fatal]
  - Chest pain [Fatal]
